FAERS Safety Report 5245194-3 (Version None)
Quarter: 2007Q1

REPORT INFORMATION
  Report Type: 
  Country: None (occurrence: None)
  Receive Date: 20070223
  Receipt Date: 20070219
  Transmission Date: 20070707
  Serious: Yes (Hospitalization)
  Sender: FDA-Public Use
  Company Number: GB-JNJFOC-20070204894

PATIENT
  Age: 58 Year
  Sex: Female

DRUGS (2)
  1. LOPERAMIDE HCL [Suspect]
     Indication: DIARRHOEA
  2. RIFAXIMIN [Concomitant]

REACTIONS (7)
  - GASTROINTESTINAL NECROSIS [None]
  - HYPOALBUMINAEMIA [None]
  - HYPONATRAEMIA [None]
  - LARGE INTESTINE PERFORATION [None]
  - LYMPHOPENIA [None]
  - MEGACOLON [None]
  - NEUTROPENIA [None]
